FAERS Safety Report 22133057 (Version 1)
Quarter: 2023Q1

REPORT INFORMATION
  Report Type: Spontaneous
  Country: GB (occurrence: GB)
  Receive Date: 20230324
  Receipt Date: 20230324
  Transmission Date: 20230418
  Serious: Yes (Other)
  Sender: FDA-Public Use
  Company Number: GB-TAKEDA-2023TUS029845

PATIENT
  Sex: Female

DRUGS (1)
  1. CUVITRU [Suspect]
     Active Substance: HUMAN IMMUNOGLOBULIN G
     Indication: Product used for unknown indication
     Dosage: 13 MILLIGRAM, 1/WEEK
     Route: 058

REACTIONS (3)
  - Lung neoplasm malignant [Unknown]
  - Rash macular [Unknown]
  - Abdominal distension [Unknown]
